FAERS Safety Report 6938870-5 (Version None)
Quarter: 2010Q3

REPORT INFORMATION
  Report Type: 
  Country: None (occurrence: None)
  Receive Date: 20100824
  Receipt Date: 20100811
  Transmission Date: 20110219
  Serious: Yes (Hospitalization)
  Sender: FDA-Public Use
  Company Number: A0832747A

PATIENT
  Age: 62 Year
  Sex: Male
  Weight: 154.5 kg

DRUGS (9)
  1. AVANDIA [Suspect]
     Dosage: 8MG PER DAY
     Route: 048
     Dates: start: 20000301, end: 20071001
  2. GLUCOPHAGE [Concomitant]
  3. GLUCOTROL [Concomitant]
  4. MIRAPEX [Concomitant]
  5. ZETIA [Concomitant]
  6. DIOVAN [Concomitant]
  7. ALLOPURINOL [Concomitant]
  8. LOPID [Concomitant]
  9. DYAZIDE [Concomitant]

REACTIONS (2)
  - CARDIAC FAILURE CONGESTIVE [None]
  - CARDIOVASCULAR DISORDER [None]
